FAERS Safety Report 24734107 (Version 1)
Quarter: 2024Q4

REPORT INFORMATION
  Report Type: Spontaneous
  Country: RU (occurrence: RU)
  Receive Date: 20241214
  Receipt Date: 20241214
  Transmission Date: 20250115
  Serious: No
  Sender: ALKEM
  Company Number: None

PATIENT
  Age: 40 Year
  Sex: Female

DRUGS (7)
  1. MYCOPHENOLATE MOFETIL [Suspect]
     Active Substance: MYCOPHENOLATE MOFETIL
     Indication: Lupus nephritis
     Dosage: 1 GRAM, QD
     Route: 065
     Dates: start: 20210614
  2. MYCOPHENOLATE MOFETIL [Suspect]
     Active Substance: MYCOPHENOLATE MOFETIL
     Dosage: UNK (RESTARTED DOSE) 1-2 GRAM/DAY
     Route: 065
     Dates: start: 20211208
  3. MYCOPHENOLATE MOFETIL [Suspect]
     Active Substance: MYCOPHENOLATE MOFETIL
     Dosage: UNK, QD (2.5 -1 G/DAY) PAST REGIMEN
     Route: 065
  4. MYCOPHENOLATE MOFETIL [Suspect]
     Active Substance: MYCOPHENOLATE MOFETIL
     Dosage: 2 MG/DAY (PAST REGIMEN)
     Route: 065
  5. CYCLOSPORINE [Suspect]
     Active Substance: CYCLOSPORINE
     Indication: Lupus nephritis
     Dosage: 150 MILLIGRAM, QD
     Route: 065
     Dates: start: 20210614
  6. CYCLOSPORINE [Suspect]
     Active Substance: CYCLOSPORINE
     Dosage: UNK (RESTARTED DOSE)
     Route: 065
     Dates: start: 20211208
  7. CYCLOSPORINE [Suspect]
     Active Substance: CYCLOSPORINE
     Dosage: UNK (TOTAL 5000MG) PAST REGIMEN
     Route: 065

REACTIONS (2)
  - Paronychia [Unknown]
  - Bursitis infective [Unknown]

NARRATIVE: CASE EVENT DATE: 20210716
